FAERS Safety Report 24797608 (Version 1)
Quarter: 2025Q1

REPORT INFORMATION
  Report Type: Spontaneous
  Country: US (occurrence: US)
  Receive Date: 20250102
  Receipt Date: 20250102
  Transmission Date: 20250409
  Serious: Yes (Hospitalization, Other)
  Sender: SYNDAX
  Company Number: US-SYNDAX PHARMACEUTICALS, INC.-2024US000628

PATIENT
  Age: 35 Year
  Sex: Male

DRUGS (3)
  1. REVUFORJ [Suspect]
     Active Substance: REVUMENIB CITRATE
     Indication: Acute myeloid leukaemia
     Dosage: 270 MILLIGRAM, BID
     Route: 048
     Dates: start: 202412
  2. REVUFORJ [Suspect]
     Active Substance: REVUMENIB CITRATE
     Route: 048
     Dates: start: 20241226
  3. REVUFORJ [Suspect]
     Active Substance: REVUMENIB CITRATE
     Dosage: 270 MILLIGRAM, BID
     Route: 048
     Dates: start: 20241227

REACTIONS (4)
  - Leukaemia recurrent [Not Recovered/Not Resolved]
  - Platelet count decreased [Not Recovered/Not Resolved]
  - Incorrect dose administered [Recovered/Resolved]
  - Confusional state [Not Recovered/Not Resolved]

NARRATIVE: CASE EVENT DATE: 20241201
